FAERS Safety Report 13592590 (Version 4)
Quarter: 2017Q3

REPORT INFORMATION
  Report Type: Spontaneous
  Country: JP (occurrence: JP)
  Receive Date: 20170530
  Receipt Date: 20170720
  Transmission Date: 20171127
  Serious: Yes (Other)
  Sender: FDA-Public Use
  Company Number: JP-ROCHE-1941178

PATIENT
  Sex: Male
  Weight: 62.9 kg

DRUGS (3)
  1. LUCENTIS [Suspect]
     Active Substance: RANIBIZUMAB
     Route: 031
     Dates: start: 20151127, end: 20151127
  2. LUCENTIS [Suspect]
     Active Substance: RANIBIZUMAB
     Indication: NEOVASCULAR AGE-RELATED MACULAR DEGENERATION
     Route: 031
     Dates: start: 20151030, end: 20151030
  3. LUCENTIS [Suspect]
     Active Substance: RANIBIZUMAB
     Route: 031
     Dates: start: 20160520, end: 20160520

REACTIONS (4)
  - Posterior capsule rupture [Unknown]
  - Neovascular age-related macular degeneration [Unknown]
  - Cataract traumatic [Recovered/Resolved]
  - Visual acuity reduced [Unknown]
